FAERS Safety Report 5357052-4 (Version None)
Quarter: 2007Q2

REPORT INFORMATION
  Report Type: 
  Country: None (occurrence: None)
  Receive Date: 20070612
  Receipt Date: 20070612
  Transmission Date: 20071010
  Serious: Yes (Other)
  Sender: FDA-Public Use
  Company Number: None

PATIENT
  Sex: Female
  Weight: 56.6996 kg

DRUGS (1)
  1. ALPHAGAN P [Suspect]
     Indication: INTRAOCULAR PRESSURE INCREASED
     Dosage: 1 DROP PER EYE 2X PER DAY EYE DROP
     Dates: start: 20061004, end: 20070310

REACTIONS (5)
  - FEELING ABNORMAL [None]
  - HYPERTENSION [None]
  - PALPITATIONS [None]
  - SENSATION OF PRESSURE [None]
  - TINNITUS [None]
